FAERS Safety Report 12664274 (Version 3)
Quarter: 2017Q1

REPORT INFORMATION
  Report Type: Report from Study
  Country: US (occurrence: US)
  Receive Date: 20160818
  Receipt Date: 20170124
  Transmission Date: 20170428
  Serious: Yes (Death, Hospitalization)
  Sender: FDA-Public Use
  Company Number: US-ACTELION-A-US2016-140811

PATIENT
  Age: 48 Year
  Sex: Female

DRUGS (12)
  1. UPTRAVI [Suspect]
     Active Substance: SELEXIPAG
     Indication: PULMONARY ARTERIAL HYPERTENSION
     Dosage: 1200 MCG, QAM
     Route: 048
     Dates: start: 20160218, end: 20160916
  2. MIDODRINE [Concomitant]
     Active Substance: MIDODRINE
  3. METOCLOPRAMIDE. [Concomitant]
     Active Substance: METOCLOPRAMIDE
  4. LEVOCARNITINE. [Concomitant]
     Active Substance: LEVOCARNITINE
  5. SEVELAMER [Concomitant]
     Active Substance: SEVELAMER
  6. SILDENAFIL. [Concomitant]
     Active Substance: SILDENAFIL
  7. LETAIRIS [Suspect]
     Active Substance: AMBRISENTAN
     Indication: PULMONARY ARTERIAL HYPERTENSION
     Dosage: 5 MG, UNK
     Route: 065
     Dates: start: 20140623, end: 20160916
  8. METOPROLOL. [Concomitant]
     Active Substance: METOPROLOL
  9. AMIODARONE [Concomitant]
     Active Substance: AMIODARONE
  10. PANTOPRAZOLE [Concomitant]
     Active Substance: PANTOPRAZOLE SODIUM
  11. UPTRAVI [Suspect]
     Active Substance: SELEXIPAG
     Dosage: 1000 MCG, QPM
     Route: 048
  12. ZOFRAN [Concomitant]
     Active Substance: ONDANSETRON HYDROCHLORIDE

REACTIONS (4)
  - Death [Fatal]
  - Pneumonia [Unknown]
  - Wrong technique in product usage process [Unknown]
  - Mechanical ventilation [Unknown]

NARRATIVE: CASE EVENT DATE: 201607
